FAERS Safety Report 24554883 (Version 1)
Quarter: 2024Q4

REPORT INFORMATION
  Report Type: Spontaneous
  Country: US (occurrence: US)
  Receive Date: 20241028
  Receipt Date: 20241028
  Transmission Date: 20250114
  Serious: Yes (Other)
  Sender: AMGEN
  Company Number: US-AMGEN-USASP2024210523

PATIENT

DRUGS (2)
  1. TALIMOGENE LAHERPAREPVEC [Suspect]
     Active Substance: TALIMOGENE LAHERPAREPVEC
     Indication: Malignant melanoma
     Dosage: UNK, 1X10^6 PLAQUE-FORMING UNITS (PFUS)/MILLILITER (ML) AS A PRIMING DOSE
     Route: 036
  2. TALIMOGENE LAHERPAREPVEC [Suspect]
     Active Substance: TALIMOGENE LAHERPAREPVEC
     Dosage: UNK UNK, Q2WK, 1X10^8  PFU/ ML BY INTRA-TUMORAL INJECTION EVERY 2 WEEKS
     Route: 036

REACTIONS (2)
  - Metastatic malignant melanoma [Unknown]
  - Therapy partial responder [Unknown]
